FAERS Safety Report 4868370-8 (Version None)
Quarter: 2005Q4

REPORT INFORMATION
  Report Type: 
  Country: None (occurrence: None)
  Receive Date: 20051229
  Receipt Date: 20051111
  Transmission Date: 20060501
  Serious: Yes (Life-Threatening, Hospitalization, Other)
  Sender: FDA-Public Use
  Company Number: US-GLAXOSMITHKLINE-A0581967A

PATIENT
  Age: 45 Year
  Sex: Male

DRUGS (2)
  1. WELLBUTRIN [Suspect]
     Indication: DEPRESSION
     Dosage: 150MG PER DAY
     Route: 048
     Dates: start: 20050930, end: 20051007
  2. ULTRACET [Concomitant]

REACTIONS (5)
  - ASPIRATION [None]
  - CONVULSION [None]
  - GAIT DISTURBANCE [None]
  - POSTICTAL STATE [None]
  - TONGUE BITING [None]
